FAERS Safety Report 18724280 (Version 3)
Quarter: 2021Q1

REPORT INFORMATION
  Report Type: Spontaneous
  Country: US (occurrence: US)
  Receive Date: 20210111
  Receipt Date: 20210127
  Transmission Date: 20210419
  Serious: No
  Sender: FDA-Public Use
  Company Number: US-GW PHARMA-202101USGW00022

PATIENT

DRUGS (4)
  1. EPIDIOLEX [Suspect]
     Active Substance: CANNABIDIOL
     Dosage: INCREASE IN DOSE
     Route: 048
  2. ONFI [Suspect]
     Active Substance: CLOBAZAM
     Dosage: DOSE REDUCED
     Route: 065
  3. EPIDIOLEX [Suspect]
     Active Substance: CANNABIDIOL
     Indication: FOCAL DYSCOGNITIVE SEIZURES
     Dosage: 250 MILLIGRAM, BID (NOT AT THE MAXIMUM DOSE YET)
     Route: 048
     Dates: start: 202012
  4. ONFI [Suspect]
     Active Substance: CLOBAZAM
     Indication: PRODUCT USED FOR UNKNOWN INDICATION
     Dosage: 10 MG
     Route: 065

REACTIONS (5)
  - Fatigue [Recovering/Resolving]
  - Disturbance in attention [Unknown]
  - Ill-defined disorder [Unknown]
  - Product use in unapproved indication [Unknown]
  - Yawning [Unknown]
